FAERS Safety Report 11839561 (Version 1)
Quarter: 2015Q4

REPORT INFORMATION
  Report Type: Spontaneous
  Country: US (occurrence: US)
  Receive Date: 20151216
  Receipt Date: 20151216
  Transmission Date: 20160305
  Serious: Yes (Death)
  Sender: FDA-Public Use
  Company Number: US-PINNACLE BIOLOGICS INC-PIN-2015-00058

PATIENT
  Sex: Female

DRUGS (1)
  1. PHOTOFRIN [Suspect]
     Active Substance: PORFIMER SODIUM
     Indication: LUNG NEOPLASM MALIGNANT
     Dates: start: 20151116, end: 20151116

REACTIONS (2)
  - Death [Fatal]
  - Erythema [Unknown]
